FAERS Safety Report 15280959 (Version 3)
Quarter: 2018Q3

REPORT INFORMATION
  Report Type: Spontaneous
  Country: CA (occurrence: CA)
  Receive Date: 20180815
  Receipt Date: 20180829
  Transmission Date: 20181010
  Serious: Yes (Other)
  Sender: FDA-Public Use
  Company Number: CA-REGENERON PHARMACEUTICALS, INC.-2018-33600

PATIENT

DRUGS (1)
  1. EYLEA [Suspect]
     Active Substance: AFLIBERCEPT
     Indication: NEOVASCULAR AGE-RELATED MACULAR DEGENERATION
     Dosage: UNK, RECEIVED TOTAL OF 48 DOSES, WITH LAST INJECTION PRIOR TO EVENT ON 23?JUL?2018
     Dates: end: 20180723

REACTIONS (4)
  - Blindness transient [Recovered/Resolved]
  - Anterior chamber cell [Unknown]
  - Vitreous haemorrhage [Recovered/Resolved]
  - Injection site inflammation [Recovering/Resolving]

NARRATIVE: CASE EVENT DATE: 20180724
